FAERS Safety Report 14028533 (Version 1)
Quarter: 2017Q3

REPORT INFORMATION
  Report Type: Spontaneous
  Country: US (occurrence: US)
  Receive Date: 20170930
  Receipt Date: 20170930
  Transmission Date: 20171128
  Serious: No
  Sender: FDA-Public Use
  Company Number: US-SA-2017SA051078

PATIENT
  Age: 69 Year
  Sex: Male

DRUGS (21)
  1. LEXAPRO [Concomitant]
     Active Substance: ESCITALOPRAM OXALATE
  2. NAPROXEN. [Concomitant]
     Active Substance: NAPROXEN
  3. NORVASC [Concomitant]
     Active Substance: AMLODIPINE BESYLATE
  4. POTASSIUM [Concomitant]
     Active Substance: POTASSIUM
  5. REMERON [Concomitant]
     Active Substance: MIRTAZAPINE
  6. LEVOTHROID [Concomitant]
     Active Substance: LEVOTHYROXINE SODIUM
  7. MUCINEX [Concomitant]
     Active Substance: GUAIFENESIN
  8. VITAMIN D3 [Concomitant]
     Active Substance: CHOLECALCIFEROL
  9. TYLENOL [Concomitant]
     Active Substance: ACETAMINOPHEN
  10. FUROSEMIDE. [Concomitant]
     Active Substance: FUROSEMIDE
  11. TRIAMTERENE. [Concomitant]
     Active Substance: TRIAMTERENE
  12. LOVASTATIN. [Concomitant]
     Active Substance: LOVASTATIN
  13. MIRALAX [Concomitant]
     Active Substance: POLYETHYLENE GLYCOL 3350
  14. CALCICHEW [Concomitant]
     Active Substance: CALCIUM CARBONATE
  15. BACTRIM [Concomitant]
     Active Substance: SULFAMETHOXAZOLE\TRIMETHOPRIM
  16. OMEPRAZOLE. [Concomitant]
     Active Substance: OMEPRAZOLE
  17. AUBAGIO [Suspect]
     Active Substance: TERIFLUNOMIDE
     Indication: MULTIPLE SCLEROSIS
     Route: 048
     Dates: start: 20160610
  18. NEURONTIN [Concomitant]
     Active Substance: GABAPENTIN
  19. SYSTANE (HYPROMELLOSE 2910 (4000 MPA.S)) [Concomitant]
     Active Substance: HYPROMELLOSE 2910 (4000 MPA.S)
  20. RAMIPRIL. [Concomitant]
     Active Substance: RAMIPRIL
  21. REQUIP [Concomitant]
     Active Substance: ROPINIROLE HYDROCHLORIDE

REACTIONS (3)
  - Loss of personal independence in daily activities [Not Recovered/Not Resolved]
  - Gait disturbance [Not Recovered/Not Resolved]
  - Asthenia [Not Recovered/Not Resolved]

NARRATIVE: CASE EVENT DATE: 20170320
